FAERS Safety Report 14962099 (Version 1)
Quarter: 2018Q2

REPORT INFORMATION
  Report Type: Spontaneous
  Country: US (occurrence: US)
  Receive Date: 20180601
  Receipt Date: 20180601
  Transmission Date: 20180711
  Serious: Yes (Other)
  Sender: FDA-Public Use
  Company Number: US-AMGEN-USASP2018059714

PATIENT
  Age: 57 Year
  Sex: Female
  Weight: 60.78 kg

DRUGS (7)
  1. ASA [Concomitant]
     Active Substance: ASPIRIN
     Dosage: 81 MG, QD
  2. LISINOPRIL HCTZ [Concomitant]
     Active Substance: HYDROCHLOROTHIAZIDE\LISINOPRIL
     Indication: HYPERTENSION
     Dosage: 10/12.5 UNK, QD
  3. VITAMIN E [Concomitant]
     Active Substance: .ALPHA.-TOCOPHEROL
     Dosage: 400 UNIT, QD
  4. VITAMIN C [Concomitant]
     Active Substance: ASCORBIC ACID
     Dosage: UNK
  5. VITAMIN B12 [Concomitant]
     Active Substance: CYANOCOBALAMIN
     Dosage: 1000 MUG, QD
  6. EPIPEN [Concomitant]
     Active Substance: EPINEPHRINE
     Dosage: UNK
  7. PROLIA [Suspect]
     Active Substance: DENOSUMAB
     Indication: OSTEOPOROSIS POSTMENOPAUSAL
     Dosage: 60 MG, Q6MO
     Route: 058
     Dates: start: 20171011, end: 20180509

REACTIONS (11)
  - Alopecia [Unknown]
  - Night sweats [Recovering/Resolving]
  - Pain in jaw [Unknown]
  - Mood swings [Unknown]
  - Muscle spasms [Unknown]
  - Eye symptom [Unknown]
  - Arthralgia [Unknown]
  - Angioedema [Recovered/Resolved]
  - Hypertension [Recovering/Resolving]
  - Temperature intolerance [Unknown]
  - Dry skin [Unknown]

NARRATIVE: CASE EVENT DATE: 20180412
